FAERS Safety Report 4659557-8 (Version None)
Quarter: 2005Q2

REPORT INFORMATION
  Report Type: 
  Country: None (occurrence: None)
  Receive Date: 20050511
  Receipt Date: 20050504
  Transmission Date: 20051028
  Serious: Yes (Hospitalization)
  Sender: FDA-Public Use
  Company Number: AT-MERCK-0505AUT00002

PATIENT
  Age: 52 Year
  Sex: Female

DRUGS (5)
  1. VIOXX [Suspect]
     Indication: BACK PAIN
     Route: 048
     Dates: start: 20010720, end: 20010701
  2. VIOXX [Suspect]
     Route: 048
     Dates: start: 20010701, end: 20020101
  3. TRAMADOL HYDROCHLORIDE [Concomitant]
     Route: 065
     Dates: start: 20010608
  4. LORNOXICAM [Concomitant]
     Route: 065
     Dates: start: 20010608
  5. PANTOPRAZOLE SODIUM [Concomitant]
     Route: 065
     Dates: start: 20010608

REACTIONS (1)
  - BRAIN STEM INFARCTION [None]
